FAERS Safety Report 4283611-6 (Version None)
Quarter: 2004Q1

REPORT INFORMATION
  Report Type: 
  Country: None (occurrence: None)
  Receive Date: 20040121
  Receipt Date: 20030909
  Transmission Date: 20041129
  Serious: Yes (Hospitalization)
  Sender: FDA-Public Use
  Company Number: A03200302084

PATIENT
  Age: 59 Year
  Sex: Male
  Weight: 81.6475 kg

DRUGS (6)
  1. PLAVIX [Suspect]
     Indication: STENT PLACEMENT
     Dosage: 75 MG QD - ORAL
     Route: 048
     Dates: start: 20030728
  2. PRAVACHOL [Suspect]
     Indication: HYPERCHOLESTEROLAEMIA
     Dosage: 20 MG - ORAL
     Route: 048
     Dates: start: 20030728, end: 20030806
  3. PRAVACHOL [Suspect]
     Indication: HYPERCHOLESTEROLAEMIA
     Dosage: 40 MG - ORAL
     Route: 048
     Dates: start: 20030806, end: 20030904
  4. METOPROLOL SUCCINATE [Concomitant]
  5. CIMETIDINE HCL [Concomitant]
  6. ACETYLSALICYLIC ACID SRT [Concomitant]

REACTIONS (4)
  - AGEUSIA [None]
  - CHEST DISCOMFORT [None]
  - HOARSENESS [None]
  - PHARYNGOLARYNGEAL PAIN [None]
